FAERS Safety Report 15983793 (Version 1)
Quarter: 2019Q1

REPORT INFORMATION
  Report Type: Spontaneous
  Country: GB (occurrence: GB)
  Receive Date: 20190220
  Receipt Date: 20190220
  Transmission Date: 20190418
  Serious: Yes (Disabling)
  Sender: FDA-Public Use
  Company Number: GB-ACCORD-107983

PATIENT
  Age: 87 Year
  Sex: Female
  Weight: 68 kg

DRUGS (24)
  1. LEVOTHYROXINE. [Concomitant]
     Active Substance: LEVOTHYROXINE
     Dates: start: 20171025
  2. FOSTAIR [Concomitant]
     Active Substance: BECLOMETHASONE\FORMOTEROL
     Dosage: HELP PREVENT BR...
     Route: 055
     Dates: start: 20180426, end: 20180504
  3. DUORESP SPIROMAX [Concomitant]
     Active Substance: BUDESONIDE\FORMOTEROL
     Dosage: PUFF.
     Dates: start: 20180403
  4. SALBUTAMOL [Concomitant]
     Active Substance: ALBUTEROL
     Dosage: 2 FOUR TIMES A DAY
     Dates: start: 20180606, end: 20180704
  5. FULTIUM-D3 [Concomitant]
     Active Substance: CHOLECALCIFEROL
     Dates: start: 20171025, end: 20180613
  6. TRIAMCINOLONE [Concomitant]
     Active Substance: TRIAMCINOLONE
     Indication: JOINT INJECTION
     Dosage: JOINT INJECTION STAT
     Dates: start: 20180613, end: 20180613
  7. VENTOLIN [Concomitant]
     Active Substance: ALBUTEROL SULFATE
     Dosage: 2 PUFFS FOUR TIMES A DAY.
     Dates: start: 20171025
  8. LOSARTAN. [Concomitant]
     Active Substance: LOSARTAN
     Dates: start: 20171025, end: 20180703
  9. BUDESONIDE. [Concomitant]
     Active Substance: BUDESONIDE
     Dosage: PUFF.
     Dates: start: 20180524
  10. BISOPROLOL [Concomitant]
     Active Substance: BISOPROLOL
     Dates: start: 20171025
  11. FENBID [Concomitant]
     Active Substance: IBUPROFEN
     Indication: ANALGESIC THERAPY
     Dosage: UP TO FOUR TIMES A DAY
     Dates: start: 20180518, end: 20180615
  12. LIDOCAINE. [Concomitant]
     Active Substance: LIDOCAINE
     Indication: JOINT INJECTION
     Dosage: STAT
     Dates: start: 20180613, end: 20180613
  13. LANSOPRAZOLE. [Concomitant]
     Active Substance: LANSOPRAZOLE
     Indication: GASTROOESOPHAGEAL REFLUX DISEASE
     Dates: start: 20171025
  14. DOXYCYCLINE. [Concomitant]
     Active Substance: DOXYCYCLINE
     Dosage: TAKE TWO CAPSULES AS A SINGLE DOSE ON THE FIRST...
     Dates: start: 20180510, end: 20180517
  15. SPIRONOLACTONE. [Suspect]
     Active Substance: SPIRONOLACTONE
     Indication: PRODUCT USED FOR UNKNOWN INDICATION
     Dates: start: 20180613
  16. LAXIDO [Concomitant]
     Active Substance: POLYETHYLENE GLYCOL 3350\POTASSIUM CHLORIDE\SODIUM BICARBONATE\SODIUM CHLORIDE
     Indication: CONSTIPATION
     Dates: start: 20171025
  17. TRAMADOL. [Concomitant]
     Active Substance: TRAMADOL
     Dosage: ONE CAPSULE UP TO 4 TIMES DAILY FOR...
     Dates: start: 20180508, end: 20180522
  18. ACETYLSALICYLIC ACID [Concomitant]
     Active Substance: ASPIRIN
     Dosage: AFTER FOOD
     Dates: start: 20171025
  19. TRIMBOW [Concomitant]
     Active Substance: BECLOMETHASONE DIPROPIONATE\FORMOTEROL FUMARATE\GLYCOPYRROLATE
     Dosage: PUFFS.
     Dates: start: 20180515, end: 20180614
  20. HYDROXOCOBALAMIN [Concomitant]
     Active Substance: HYDROXOCOBALAMIN
     Dates: start: 20171025
  21. TIOTROPIUM/TIOTROPIUM BROMIDE [Concomitant]
     Dates: start: 20171025
  22. FUROSEMIDE. [Concomitant]
     Active Substance: FUROSEMIDE
     Dates: start: 20171025
  23. PREDNISOLONE. [Concomitant]
     Active Substance: PREDNISOLONE
     Dosage: WITH OR AFTER FOOD FOR 5 DAYS A...
     Dates: start: 20180606, end: 20180611
  24. AMOXICILLIN. [Concomitant]
     Active Substance: AMOXICILLIN
     Dates: start: 20180625, end: 20180702

REACTIONS (2)
  - Dizziness [Unknown]
  - Dizziness postural [Recovered/Resolved]

NARRATIVE: CASE EVENT DATE: 20180706
